FAERS Safety Report 6025439-2 (Version None)
Quarter: 2008Q4

REPORT INFORMATION
  Report Type: 
  Country: None (occurrence: None)
  Receive Date: 20081229
  Receipt Date: 20081229
  Transmission Date: 20090506
  Serious: No
  Sender: FDA-Public Use
  Company Number: None

PATIENT
  Age: 57 Year
  Sex: Male
  Weight: 77.5651 kg

DRUGS (1)
  1. FLUORECEIN INJECTION 10% [Suspect]
     Dosage: ONE IV
     Route: 042

REACTIONS (3)
  - BURNING SENSATION [None]
  - CONTRAST MEDIA REACTION [None]
  - URTICARIA [None]
